FAERS Safety Report 7416232-4 (Version None)
Quarter: 2011Q2

REPORT INFORMATION
  Report Type: 
  Country: None (occurrence: None)
  Receive Date: 20110414
  Receipt Date: 20110330
  Transmission Date: 20111010
  Serious: Yes (Congenital Anomaly, Other)
  Sender: FDA-Public Use
  Company Number: FR-PFIZER INC-2010006270

PATIENT
  Sex: Female

DRUGS (14)
  1. LYRICA [Suspect]
     Dosage: 1 DF, 3X/DAY
     Route: 064
     Dates: end: 20090401
  2. DEROXAT [Suspect]
     Dosage: 1 DF, 2X/DAY
     Route: 064
     Dates: end: 20090401
  3. NOVORAPID [Concomitant]
  4. DOXIUM [Suspect]
     Dosage: 1 DF, 3X/DAY
     Route: 064
     Dates: end: 20090401
  5. DICYNONE [Suspect]
     Dosage: 1 DF, 1X/DAY
     Route: 064
     Dates: end: 20090401
  6. TERCIAN [Suspect]
     Dosage: UNK
     Route: 064
  7. LYSANXIA [Suspect]
     Dosage: 1 DF, 3X/DAY
     Route: 064
     Dates: end: 20090401
  8. INSULIN GLULISINE [Concomitant]
     Dosage: UNK
  9. ANAFRANIL [Concomitant]
  10. DAFALGAN [Concomitant]
  11. DEXERYL ^PIERRE FABRE^ [Concomitant]
  12. OLMESARTAN MEDOXOMIL [Suspect]
     Dosage: UNK
     Route: 064
     Dates: end: 20090401
  13. SEROPRAM [Suspect]
     Dosage: UNK
     Route: 064
     Dates: start: 20090401
  14. OROCAL [Concomitant]
     Dosage: 500 ONCE DAILY

REACTIONS (4)
  - CONGENITAL MUSCULOSKELETAL ANOMALY [None]
  - ATRIAL SEPTAL DEFECT [None]
  - PREMATURE BABY [None]
  - DRUG EXPOSURE DURING PREGNANCY [None]
